FAERS Safety Report 10540138 (Version 1)
Quarter: 2014Q4

REPORT INFORMATION
  Report Type: Spontaneous
  Country: US (occurrence: None)
  Receive Date: 20141023
  Receipt Date: 20141023
  Transmission Date: 20150529
  Serious: No
  Sender: FDA-Public Use
  Company Number: None

PATIENT
  Age: 51 Year
  Weight: 58.51 kg

DRUGS (1)
  1. VIIBRYD [Suspect]
     Active Substance: VILAZODONE HYDROCHLORIDE
     Indication: DEPRESSION
     Dosage: TAKEN BY MOUTH
     Dates: start: 20140519, end: 20141022

REACTIONS (3)
  - Weight increased [None]
  - Abdominal distension [None]
  - Paraesthesia [None]

NARRATIVE: CASE EVENT DATE: 20141022
